FAERS Safety Report 6778129-2 (Version None)
Quarter: 2010Q2

REPORT INFORMATION
  Report Type: 
  Country: None (occurrence: None)
  Receive Date: 20100618
  Receipt Date: 20100609
  Transmission Date: 20101027
  Serious: No
  Sender: FDA-Public Use
  Company Number: 2008BI028348

PATIENT
  Age: 57 Year
  Sex: Female

DRUGS (3)
  1. TYSABRI [Suspect]
     Indication: MULTIPLE SCLEROSIS
     Route: 042
     Dates: start: 20050211, end: 20050201
  2. TYSABRI [Suspect]
     Route: 042
     Dates: start: 20070112, end: 20071115
  3. TYSABRI [Suspect]
     Route: 042
     Dates: start: 20080222, end: 20080820

REACTIONS (1)
  - CENTRAL NERVOUS SYSTEM LESION [None]
